FAERS Safety Report 5329274-X (Version None)
Quarter: 2007Q2

REPORT INFORMATION
  Report Type: 
  Country: None (occurrence: None)
  Receive Date: 20070518
  Receipt Date: 20070510
  Transmission Date: 20071010
  Serious: Yes (Other)
  Sender: FDA-Public Use
  Company Number: FR-ABBOTT-07P-056-0367934-00

PATIENT
  Age: 25 Year
  Sex: Male

DRUGS (5)
  1. KALETRA [Suspect]
     Indication: HIV INFECTION
     Route: 048
     Dates: start: 20060501
  2. KALETRA [Suspect]
  3. ABACAVIR/LAMIVUDINE [Concomitant]
     Indication: HIV INFECTION
     Dates: start: 20060501
  4. EMTRICITABINE/TENOFOVIR DISOPROXIL [Concomitant]
     Indication: HIV INFECTION
  5. EMTRICITABINE/TENOFOVIR DISOPROXIL [Concomitant]

REACTIONS (2)
  - HEPATITIS [None]
  - TRANSAMINASES INCREASED [None]
